FAERS Safety Report 8959495 (Version 12)
Quarter: 2013Q3

REPORT INFORMATION
  Report Type: Report from Study
  Country: US (occurrence: US)
  Receive Date: 20121212
  Receipt Date: 20130923
  Transmission Date: 20140515
  Serious: Yes (Death, Life-Threatening, Hospitalization)
  Sender: FDA-Public Use
  Company Number: US-ROCHE-1052000

PATIENT
  Age: 67 Year
  Sex: Female
  Weight: 63.8 kg

DRUGS (47)
  1. BLINDED TOCILIZUMAB [Suspect]
     Indication: RHEUMATOID ARTHRITIS
     Dosage: MOST RECENT DOSE: 17/DEC/2010, 04/APR/2011
     Route: 058
     Dates: start: 20101112
  2. BLINDED TOCILIZUMAB [Suspect]
     Indication: RHEUMATOID ARTHRITIS
     Dosage: MOST RECENT DOSE: 10/DEC/2010, 04/APR/2011
     Route: 042
     Dates: start: 20101112
  3. TOCILIZUMAB [Suspect]
     Indication: RHEUMATOID ARTHRITIS
     Dosage: MOST RECENT DOSE OF 162 MG ADMINISTERED ON: 16/MAR/2012. MOST RECENT DOSE OF 162 MG ADMINISTERED ON
     Route: 058
     Dates: start: 20110506
  4. ERYTHROMYCIN [Suspect]
     Indication: PRODUCT USED FOR UNKNOWN INDICATION
     Route: 048
     Dates: start: 20101220, end: 20101228
  5. MACROBID [Concomitant]
     Route: 048
     Dates: start: 20120120
  6. MACROBID [Concomitant]
     Route: 048
     Dates: start: 20120128
  7. MACROBID [Concomitant]
     Route: 048
     Dates: start: 20111021, end: 20111027
  8. MACROBID [Concomitant]
     Route: 048
     Dates: start: 20111028, end: 20120119
  9. FOLIC ACID [Concomitant]
     Route: 048
     Dates: start: 20101031
  10. IBUPROFEN [Concomitant]
     Indication: RHEUMATOID ARTHRITIS
     Route: 048
     Dates: start: 20100903
  11. ATENOLOL [Concomitant]
     Route: 048
     Dates: start: 2009
  12. CELEBREX [Concomitant]
     Indication: RHEUMATOID ARTHRITIS
     Route: 048
     Dates: start: 200902
  13. PREDNISONE [Concomitant]
     Indication: RHEUMATOID ARTHRITIS
     Route: 048
     Dates: start: 201007
  14. METHOTREXATE [Concomitant]
     Indication: RHEUMATOID ARTHRITIS
     Route: 048
     Dates: start: 20000426
  15. ALKA-SELTZER PLUS COLD AND COUGH [Concomitant]
     Route: 048
     Dates: start: 20101112
  16. ALKA-SELTZER PLUS COLD AND COUGH [Concomitant]
     Dosage: 2 TABLET
     Route: 048
     Dates: start: 20110503
  17. ALKA-SELTZER PLUS COLD AND COUGH [Concomitant]
     Route: 048
     Dates: start: 20101126
  18. CAPSAICIN [Concomitant]
     Route: 061
     Dates: start: 20101020
  19. ZANTAC [Concomitant]
     Route: 048
     Dates: start: 20010308
  20. ZYRTEC [Concomitant]
     Route: 048
     Dates: start: 2002
  21. TYLENOL [Concomitant]
     Route: 048
     Dates: start: 1963
  22. THERACRAN [Concomitant]
     Route: 048
     Dates: start: 20111130
  23. MUCUS RELIEF SINUS [Concomitant]
     Route: 048
     Dates: start: 20111112
  24. LISINOPRIL [Concomitant]
     Route: 048
     Dates: start: 20120209
  25. CARDIZEM [Concomitant]
     Route: 042
     Dates: start: 20120414, end: 20120415
  26. VERSED [Concomitant]
     Route: 042
     Dates: start: 20120320, end: 20120320
  27. FENTANYL [Concomitant]
     Route: 042
     Dates: start: 20120320, end: 20120320
  28. MOXIFLOXACIN [Concomitant]
     Route: 042
     Dates: start: 20120404, end: 20120413
  29. METRONIDAZOL [Concomitant]
     Route: 042
     Dates: start: 20120404, end: 20120416
  30. DIGOXIN [Concomitant]
     Route: 042
     Dates: start: 20120414, end: 20120418
  31. DILTIAZEM CD [Concomitant]
     Route: 048
     Dates: start: 20120415, end: 20120422
  32. ACETAMINOPHEN [Concomitant]
     Route: 048
     Dates: start: 20110425
  33. PHENYLEPHRINE HCL [Concomitant]
     Route: 048
     Dates: start: 20110425
  34. CHLORPHENIRAMINE MALEATE [Concomitant]
     Route: 048
     Dates: start: 20110425
  35. CEFAZOLIN [Concomitant]
     Route: 042
     Dates: start: 20120321, end: 20120324
  36. FONDAPARINUX [Concomitant]
     Route: 058
     Dates: start: 20120322, end: 20120324
  37. HYDROCORTISONE [Concomitant]
     Route: 042
     Dates: start: 20120403, end: 20120408
  38. FLUCONAZOLE [Concomitant]
     Route: 048
     Dates: start: 20120413, end: 20120426
  39. MEROPENEM [Concomitant]
     Route: 042
     Dates: start: 20120417, end: 20120503
  40. ERAXIS [Concomitant]
     Route: 042
     Dates: start: 20120505, end: 20120520
  41. AMIKIN [Concomitant]
     Route: 042
     Dates: start: 20120513, end: 20120520
  42. TOBRAMYCIN [Concomitant]
     Route: 042
     Dates: start: 20120520, end: 20120614
  43. CIPRO [Concomitant]
     Route: 042
     Dates: start: 20120521, end: 20120607
  44. CIPRO [Concomitant]
     Route: 048
     Dates: start: 20110715, end: 20110722
  45. VANCOMYCIN [Concomitant]
     Route: 042
     Dates: start: 20120613, end: 20120623
  46. CAPTOPRIL [Concomitant]
     Route: 048
     Dates: start: 20020310, end: 20120209
  47. DEPO-MEDROL [Concomitant]
     Route: 030
     Dates: start: 20120222, end: 20120222

REACTIONS (14)
  - Death [Fatal]
  - Acute respiratory failure [Unknown]
  - Peritonitis [Recovered/Resolved with Sequelae]
  - Renal failure acute [Not Recovered/Not Resolved]
  - Urosepsis [Unknown]
  - Pseudomonal sepsis [Unknown]
  - Septic shock [Unknown]
  - Diverticular perforation [Recovered/Resolved]
  - Encephalopathy [Unknown]
  - Atrial fibrillation [Recovered/Resolved]
  - Femur fracture [Recovered/Resolved]
  - Urinary tract infection [Recovered/Resolved]
  - Urinary tract infection [Not Recovered/Not Resolved]
  - Drug hypersensitivity [Recovered/Resolved]
